FAERS Safety Report 9255676 (Version 1)
Quarter: 2013Q2

REPORT INFORMATION
  Report Type: Report from Study
  Country: AT (occurrence: GB)
  Receive Date: 20130425
  Receipt Date: 20130425
  Transmission Date: 20140414
  Serious: Yes (Other)
  Sender: FDA-Public Use
  Company Number: AT-OTSUKA-US-2013-10779

PATIENT
  Age: 2 Year
  Sex: Female

DRUGS (2)
  1. BUSULFEX [Suspect]
     Indication: STEM CELL TRANSPLANT
     Route: 042
  2. MELPHALAN [Suspect]
     Indication: STEM CELL TRANSPLANT
     Dosage: 140 MG/M2, QD
     Route: 042

REACTIONS (13)
  - Venoocclusive liver disease [Unknown]
  - Aspartate aminotransferase increased [Unknown]
  - Hypertension [Unknown]
  - Vomiting [Unknown]
  - Pyrexia [Unknown]
  - Diarrhoea [Unknown]
  - Infection [Unknown]
  - Haemoglobin decreased [Unknown]
  - Stomatitis [Unknown]
  - Platelet count decreased [Unknown]
  - Granulocyte count decreased [Unknown]
  - White blood cell count decreased [Unknown]
  - Disease progression [Unknown]
